FAERS Safety Report 12140464 (Version 1)
Quarter: 2016Q1

REPORT INFORMATION
  Report Type: Spontaneous
  Country: US (occurrence: US)
  Receive Date: 20160303
  Receipt Date: 20160303
  Transmission Date: 20160526
  Serious: Yes (Hospitalization, Other)
  Sender: FDA-Public Use
  Company Number: US-MIRS-USB15-00054

PATIENT
  Age: 51 Year
  Sex: Female

DRUGS (1)
  1. GAMMAGARD LIQUID [Suspect]
     Active Substance: HUMAN IMMUNOGLOBULIN G
     Indication: IMMUNODEFICIENCY COMMON VARIABLE
     Dosage: UNK
     Route: 058

REACTIONS (7)
  - Micturition disorder [Unknown]
  - Overweight [Unknown]
  - Dehydration [Unknown]
  - Erythema [Unknown]
  - Oedema peripheral [Unknown]
  - Burning sensation [Unknown]
  - Renal failure [Not Recovered/Not Resolved]

NARRATIVE: CASE EVENT DATE: 201411
